FAERS Safety Report 5830759-8 (Version None)
Quarter: 2008Q3

REPORT INFORMATION
  Report Type: 
  Country: None (occurrence: None)
  Receive Date: 20080801
  Receipt Date: 20071112
  Transmission Date: 20090109
  Serious: No
  Sender: FDA-Public Use
  Company Number: US-BRISTOL-MYERS SQUIBB COMPANY-13979562

PATIENT
  Age: 75 Year
  Sex: Female
  Weight: 55 kg

DRUGS (1)
  1. COUMADIN [Suspect]
     Indication: CARDIAC FIBRILLATION
     Dates: start: 20020101

REACTIONS (1)
  - EYE HAEMORRHAGE [None]
